FAERS Safety Report 24994528 (Version 1)
Quarter: 2025Q1

REPORT INFORMATION
  Report Type: Report from Study
  Country: CA (occurrence: CA)
  Receive Date: 20250221
  Receipt Date: 20250221
  Transmission Date: 20250409
  Serious: Yes (Other)
  Sender: TAKEDA
  Company Number: CA-TAKEDA-2025TUS006631

PATIENT
  Sex: Female

DRUGS (2)
  1. VEDOLIZUMAB [Suspect]
     Active Substance: VEDOLIZUMAB
     Indication: Crohn^s disease
  2. PREDNISONE [Concomitant]
     Active Substance: PREDNISONE

REACTIONS (15)
  - Haematochezia [Unknown]
  - Malaise [Unknown]
  - Diarrhoea [Unknown]
  - Abscess oral [Unknown]
  - Mucous stools [Unknown]
  - Mouth ulceration [Unknown]
  - Fistula [Unknown]
  - Frequent bowel movements [Unknown]
  - Faeces soft [Unknown]
  - Gastrointestinal sounds abnormal [Unknown]
  - Abdominal pain [Unknown]
  - Anal fissure [Unknown]
  - Abdominal distension [Unknown]
  - Acne [Unknown]
  - Arthralgia [Unknown]
